FAERS Safety Report 18901963 (Version 3)
Quarter: 2021Q1

REPORT INFORMATION
  Report Type: Spontaneous
  Country: CA (occurrence: CA)
  Receive Date: 20210216
  Receipt Date: 20210304
  Transmission Date: 20210420
  Serious: Yes (Other)
  Sender: FDA-Public Use
  Company Number: CA-PFIZER INC-2021138524

PATIENT
  Age: 85 Year
  Sex: Female

DRUGS (2)
  1. XELJANZ XR [Suspect]
     Active Substance: TOFACITINIB CITRATE
     Indication: RHEUMATOID ARTHRITIS
     Dosage: 11 MG, 1X/DAY
     Route: 048
     Dates: start: 20210115, end: 20210209
  2. METHOTREXATE. [Concomitant]
     Active Substance: METHOTREXATE
     Indication: RHEUMATOID ARTHRITIS
     Dosage: 1 DF (UNKNOWN DOSE)

REACTIONS (9)
  - Fall [Unknown]
  - Micturition urgency [Unknown]
  - Fatigue [Recovering/Resolving]
  - Urinary tract infection [Unknown]
  - Headache [Unknown]
  - Therapeutic product effect incomplete [Unknown]
  - Dysstasia [Unknown]
  - Somnolence [Unknown]
  - Muscular weakness [Not Recovered/Not Resolved]

NARRATIVE: CASE EVENT DATE: 2021
